FAERS Safety Report 10166067 (Version 2)
Quarter: 2014Q2

REPORT INFORMATION
  Report Type: Report from Study
  Country: HU (occurrence: HU)
  Receive Date: 20140512
  Receipt Date: 20140512
  Transmission Date: 20141212
  Serious: No
  Sender: FDA-Public Use
  Company Number: HU-AMGEN-HUNNI2014027805

PATIENT
  Age: 63 Year
  Sex: Male

DRUGS (4)
  1. PANITUMUMAB [Suspect]
     Indication: COLORECTAL CANCER METASTATIC
     Dosage: 403 MG, Q2WK
     Route: 042
     Dates: start: 20140304
  2. OXALIPLATIN [Concomitant]
     Indication: COLORECTAL CANCER METASTATIC
     Dosage: 85 MG, Q2WK
     Route: 042
     Dates: start: 20140304
  3. CALCIUM FOLINATE [Concomitant]
     Dosage: 399 MG, Q2WK
     Route: 042
     Dates: start: 20140304
  4. 5-FU                               /00098801/ [Concomitant]
     Indication: COLORECTAL CANCER METASTATIC
     Dosage: 2000 MG, Q2WK
     Route: 042
     Dates: start: 20140304

REACTIONS (1)
  - Dermatitis acneiform [Recovered/Resolved]
